FAERS Safety Report 4359900-3 (Version None)
Quarter: 2004Q2

REPORT INFORMATION
  Report Type: 
  Country: None (occurrence: None)
  Receive Date: 20040518
  Receipt Date: 20040430
  Transmission Date: 20050107
  Serious: Yes (Other)
  Sender: FDA-Public Use
  Company Number: CA-ROCHE-367133

PATIENT

DRUGS (3)
  1. CELLCEPT [Suspect]
     Indication: DRUG USE FOR UNKNOWN INDICATION
     Route: 065
  2. NEORAL [Suspect]
     Indication: DRUG USE FOR UNKNOWN INDICATION
     Route: 065
  3. STEROIDS [Suspect]
     Indication: DRUG USE FOR UNKNOWN INDICATION
     Route: 065

REACTIONS (11)
  - BLOOD CREATININE INCREASED [None]
  - BRONCHITIS [None]
  - COUGH [None]
  - DIARRHOEA [None]
  - DYSPEPSIA [None]
  - HEPATIC ENZYME INCREASED [None]
  - HYPOXIA [None]
  - LYMPHADENOPATHY [None]
  - PULMONARY HAEMORRHAGE [None]
  - PYREXIA [None]
  - VIRAL INFECTION [None]
